FAERS Safety Report 8088371-9 (Version None)
Quarter: 2012Q1

REPORT INFORMATION
  Report Type: 
  Country: None (occurrence: None)
  Receive Date: 20120128
  Receipt Date: 20110530
  Transmission Date: 20120608
  Serious: No
  Sender: FDA-Public Use
  Company Number: US-ABBOTT-11P-163-0729240-00

PATIENT
  Sex: Male
  Weight: 93.07 kg

DRUGS (2)
  1. HUMIRA [Suspect]
     Indication: RHEUMATOID ARTHRITIS
     Dates: start: 20100901
  2. HUMIRA [Suspect]
     Indication: CROHN'S DISEASE
     Dates: start: 20090901

REACTIONS (5)
  - INJECTION SITE INFLAMMATION [None]
  - INJECTION SITE INDURATION [None]
  - INJECTION SITE SWELLING [None]
  - INJECTION SITE PAIN [None]
  - INJECTION SITE ERYTHEMA [None]
